FAERS Safety Report 14718742 (Version 2)
Quarter: 2018Q3

REPORT INFORMATION
  Report Type: Spontaneous
  Country: US (occurrence: FR)
  Receive Date: 20180405
  Receipt Date: 20180730
  Transmission Date: 20181010
  Serious: Yes (Hospitalization)
  Sender: FDA-Public Use
  Company Number: US-SUN PHARMACEUTICAL INDUSTRIES LTD-2018US-169082

PATIENT
  Age: 52 Year
  Sex: Male

DRUGS (2)
  1. DOCETAXEL. [Suspect]
     Active Substance: DOCETAXEL
     Dosage: SECOND INJECTION, 75 MG/M2, EVERY 3 WEEKS
     Route: 065
     Dates: start: 201605
  2. DOCETAXEL. [Suspect]
     Active Substance: DOCETAXEL
     Indication: PROSTATE CANCER METASTATIC
     Dosage: 75 MG/M2, EVERY 3 WEEKS
     Route: 065
     Dates: start: 201604

REACTIONS (2)
  - Fasciitis [Recovered/Resolved]
  - Myositis [Recovered/Resolved]
